FAERS Safety Report 25437178 (Version 1)
Quarter: 2025Q2

REPORT INFORMATION
  Report Type: Spontaneous
  Country: CA (occurrence: CA)
  Receive Date: 20250616
  Receipt Date: 20250616
  Transmission Date: 20250717
  Serious: Yes (Other)
  Sender: Haleon PLC
  Company Number: CA-HALEON-2246437

PATIENT
  Age: 8 Year
  Sex: Male

DRUGS (2)
  1. ADVIL [Suspect]
     Active Substance: IBUPROFEN
     Indication: Drug provocation test
  2. NAPROXEN [Concomitant]
     Active Substance: NAPROXEN
     Indication: Drug provocation test

REACTIONS (2)
  - Angioedema [Unknown]
  - Off label use [Unknown]
